FAERS Safety Report 9802808 (Version 1)
Quarter: 2013Q4

REPORT INFORMATION
  Report Type: Spontaneous
  Country: US (occurrence: None)
  Receive Date: 20131231
  Receipt Date: 20131231
  Transmission Date: 20140711
  Serious: Yes (Hospitalization)
  Sender: FDA-Public Use
  Company Number: SYM-2013-14328

PATIENT
  Age: 68 Year
  Sex: Male

DRUGS (1)
  1. XENAZINE (TETRABENAZINE) (12.5 MILLIGRAM, TABLET) (TETRABENAZINE) [Suspect]
     Indication: TARDIVE DYSKINESIA
     Dosage: 12.5MG AT BEDTIME, DAILY
     Dates: start: 2013, end: 201312

REACTIONS (1)
  - Investigation [None]
